FAERS Safety Report 11821160 (Version 1)
Quarter: 2015Q4

REPORT INFORMATION
  Report Type: Spontaneous
  Country: US (occurrence: US)
  Receive Date: 20151210
  Receipt Date: 20151210
  Transmission Date: 20160305
  Serious: No
  Sender: FDA-Public Use
  Company Number: US-JNJFOC-20150605948

PATIENT
  Age: 81 Year
  Sex: Male

DRUGS (13)
  1. NORCO [Concomitant]
     Active Substance: ACETAMINOPHEN\HYDROCODONE BITARTRATE
  2. IMBRUVICA [Suspect]
     Active Substance: IBRUTINIB
     Indication: CHRONIC LYMPHOCYTIC LEUKAEMIA
     Dosage: TUES, THURS, SAT, SUN/420 MG MON, WED, FRI
     Route: 048
     Dates: start: 20150611
  3. NEXIUM [Concomitant]
     Active Substance: ESOMEPRAZOLE MAGNESIUM
  4. ALLOPURINOL. [Concomitant]
     Active Substance: ALLOPURINOL
  5. METOPROLOL [Concomitant]
     Active Substance: METOPROLOL
  6. VITAMIN D3 [Concomitant]
     Active Substance: CHOLECALCIFEROL
  7. VITAMIN B12 [Concomitant]
     Active Substance: CYANOCOBALAMIN
  8. VALSARTAN. [Concomitant]
     Active Substance: VALSARTAN
  9. XARELTO [Concomitant]
     Active Substance: RIVAROXABAN
  10. IMBRUVICA [Suspect]
     Active Substance: IBRUTINIB
     Indication: CHRONIC LYMPHOCYTIC LEUKAEMIA
     Dosage: 280 MG TUES, THURS, SAT, SUN/420 MG MON, WED, FRI
     Route: 048
     Dates: start: 20150303
  11. COQ10 [Concomitant]
     Active Substance: UBIDECARENONE
  12. TAMSULOSIN [Concomitant]
     Active Substance: TAMSULOSIN
  13. OMEGA 3 [Concomitant]
     Active Substance: OMEGA-3 FATTY ACIDS

REACTIONS (5)
  - Platelet count decreased [Not Recovered/Not Resolved]
  - Incorrect dose administered [Not Recovered/Not Resolved]
  - Hypersomnia [Recovering/Resolving]
  - Decreased appetite [Not Recovered/Not Resolved]
  - Fatigue [Recovering/Resolving]

NARRATIVE: CASE EVENT DATE: 20150508
